FAERS Safety Report 9689021 (Version 1)
Quarter: 2013Q4

REPORT INFORMATION
  Report Type: Spontaneous
  Country: NL (occurrence: NL)
  Receive Date: 20131114
  Receipt Date: 20131114
  Transmission Date: 20140711
  Serious: Yes (Other)
  Sender: FDA-Public Use
  Company Number: NL-PFIZER INC-2013323002

PATIENT
  Age: 79 Year
  Sex: Male
  Weight: 87 kg

DRUGS (5)
  1. DOXYCYCLINE HYCLATE [Suspect]
     Indication: RESPIRATORY TRACT INFECTION
     Dosage: 200 MG, 1X/DAY
     Dates: start: 20131024, end: 20131024
  2. PERINDOPRIL ERBUMINE [Concomitant]
     Dosage: 8 MG, 1X/DAY
     Dates: start: 2005
  3. HYDROCHLOROTHIAZIDE [Concomitant]
     Dosage: 12.5 MG, 1X/DAY
     Dates: start: 2009
  4. PANTOPRAZOL [Concomitant]
     Dosage: 40 MG, 1X/DAY
     Dates: start: 2007
  5. ACENOCOUMAROL [Concomitant]
     Dosage: UNK
     Dates: start: 2010

REACTIONS (2)
  - Atrial fibrillation [Recovered/Resolved]
  - Palpitations [Recovered/Resolved]
